FAERS Safety Report 10852928 (Version 1)
Quarter: 2015Q1

REPORT INFORMATION
  Report Type: Report from Study
  Country: FR (occurrence: FR)
  Receive Date: 20150223
  Receipt Date: 20150223
  Transmission Date: 20150721
  Serious: Yes (Death)
  Sender: FDA-Public Use
  Company Number: FR-ROCHE-1540485

PATIENT
  Age: 62 Year

DRUGS (10)
  1. TRASTUZUMAB [Suspect]
     Active Substance: TRASTUZUMAB
     Indication: HER-2 POSITIVE BREAST CANCER
     Route: 042
     Dates: start: 20150128
  2. COUMADINE [Concomitant]
     Active Substance: WARFARIN SODIUM
     Route: 048
     Dates: end: 20150211
  3. TRAMADOL [Concomitant]
     Active Substance: TRAMADOL
     Route: 042
     Dates: end: 20150211
  4. PACLITAXEL. [Suspect]
     Active Substance: PACLITAXEL
     Indication: HER-2 POSITIVE BREAST CANCER
     Dosage: LAST ADMINISTRATION BEFORE SAE ON 04/02/2015
     Route: 042
     Dates: start: 20150128
  5. SOLU-MEDROL [Concomitant]
     Active Substance: METHYLPREDNISOLONE SODIUM SUCCINATE
     Route: 042
     Dates: start: 20150129, end: 20150211
  6. PERTUZUMAB [Suspect]
     Active Substance: PERTUZUMAB
     Indication: HER-2 POSITIVE BREAST CANCER
     Route: 042
     Dates: start: 20150128
  7. LOXEN (FRANCE) [Concomitant]
     Active Substance: NICARDIPINE HYDROCHLORIDE
     Route: 042
     Dates: end: 20150211
  8. VALSARTAN. [Concomitant]
     Active Substance: VALSARTAN
     Route: 042
     Dates: end: 20150211
  9. PIASCLEDINE (FRANCE) [Concomitant]
     Active Substance: AVOCADO OIL\SOYBEAN OIL
     Route: 048
     Dates: end: 20150211
  10. ESIDREX [Concomitant]
     Active Substance: HYDROCHLOROTHIAZIDE
     Route: 065
     Dates: end: 20150211

REACTIONS (1)
  - Hyperglycaemia [Fatal]

NARRATIVE: CASE EVENT DATE: 20150210
